FAERS Safety Report 11772815 (Version 1)
Quarter: 2015Q4

REPORT INFORMATION
  Report Type: Spontaneous
  Country: CL (occurrence: US)
  Receive Date: 20151124
  Receipt Date: 20151124
  Transmission Date: 20160304
  Serious: Yes (Other)
  Sender: FDA-Public Use
  Company Number: CL-MALLINCKRODT-T201504058

PATIENT
  Age: 9 Year
  Sex: Male

DRUGS (4)
  1. DIAZEPAM. [Concomitant]
     Active Substance: DIAZEPAM
     Indication: PRODUCT USED FOR UNKNOWN INDICATION
     Dosage: 5MG/5ML, 2 ML Q 6 HRS.
     Route: 048
  2. GABLOFEN [Suspect]
     Active Substance: BACLOFEN
     Indication: DIPLEGIA
     Dosage: 430 MCG/DAY
     Route: 037
  3. GABLOFEN [Suspect]
     Active Substance: BACLOFEN
     Dosage: 192 MCG/ML
     Route: 037
     Dates: start: 20150808
  4. GABLOFEN [Suspect]
     Active Substance: BACLOFEN
     Dosage: 230 MCG/DAY
     Route: 037
     Dates: end: 20150808

REACTIONS (2)
  - Device damage [Unknown]
  - Overdose [Recovered/Resolved]

NARRATIVE: CASE EVENT DATE: 20150730
